FAERS Safety Report 5581273-9 (Version None)
Quarter: 2008Q1

REPORT INFORMATION
  Report Type: 
  Country: None (occurrence: None)
  Receive Date: 20080104
  Receipt Date: 20071227
  Transmission Date: 20080703
  Serious: Yes (Hospitalization)
  Sender: FDA-Public Use
  Company Number: CA-JNJFOC-20080100143

PATIENT
  Sex: Female
  Weight: 86.5 kg

DRUGS (1)
  1. REMICADE [Suspect]
     Indication: PSORIASIS
     Dosage: 6 DOSES
     Route: 042

REACTIONS (1)
  - ARTERIAL OCCLUSIVE DISEASE [None]
